FAERS Safety Report 5230223-3 (Version None)
Quarter: 2007Q1

REPORT INFORMATION
  Report Type: 
  Country: None (occurrence: None)
  Receive Date: 20070206
  Receipt Date: 20061009
  Transmission Date: 20070707
  Serious: No
  Sender: FDA-Public Use
  Company Number: US-GLAXOSMITHKLINE-A0622908A

PATIENT
  Age: 57 Year
  Sex: Female

DRUGS (4)
  1. PAXIL CR [Suspect]
     Indication: DEPRESSION
     Dosage: 75MG PER DAY
     Route: 048
     Dates: start: 19980101
  2. WELLBUTRIN SR [Suspect]
     Indication: MENTAL IMPAIRMENT
     Dosage: 150MG PER DAY
     Route: 048
     Dates: start: 20020101, end: 20060531
  3. CYTOMEL [Concomitant]
  4. SYNTHROID [Concomitant]

REACTIONS (3)
  - MUSCLE TIGHTNESS [None]
  - MUSCULOSKELETAL STIFFNESS [None]
  - PALPITATIONS [None]
